FAERS Safety Report 9289228 (Version 1)
Quarter: 2013Q2

REPORT INFORMATION
  Report Type: Spontaneous
  Country: US (occurrence: None)
  Receive Date: 20130510
  Receipt Date: 20130510
  Transmission Date: 20140414
  Serious: Yes (Other)
  Sender: FDA-Public Use
  Company Number: US-1198018

PATIENT
  Age: 85 Year
  Sex: Female

DRUGS (14)
  1. AZOPT [Suspect]
     Indication: OPEN ANGLE GLAUCOMA
     Dosage: (1 GTT BID OPHTHALMIC)
     Route: 047
     Dates: start: 20130423, end: 20130425
  2. COUMADIN [Concomitant]
  3. ZETIA [Concomitant]
  4. TOPROL [Concomitant]
  5. SYNTHROID [Concomitant]
  6. AMLODIPINE BESYLATE [Concomitant]
  7. TRICOR [Concomitant]
  8. BENICAR HCT [Concomitant]
  9. XALATAN [Concomitant]
  10. ADVAIR [Concomitant]
  11. DOXAZOSIN MESYLATE [Concomitant]
  12. AUGMENTIN [Concomitant]
  13. PROAIR HFA [Concomitant]
  14. FLOVENT [Concomitant]

REACTIONS (5)
  - Heart rate irregular [None]
  - Hypertension [None]
  - Dyspnoea [None]
  - Eye irritation [None]
  - Eyelid margin crusting [None]
